FAERS Safety Report 17809414 (Version 1)
Quarter: 2020Q2

REPORT INFORMATION
  Report Type: Spontaneous
  Country: ES (occurrence: ES)
  Receive Date: 20200521
  Receipt Date: 20200521
  Transmission Date: 20200714
  Serious: Yes (Hospitalization)
  Sender: FDA-Public Use
  Company Number: ES-SUN PHARMACEUTICAL INDUSTRIES LTD-2020RR-247892

PATIENT
  Age: 81 Year
  Sex: Male

DRUGS (4)
  1. BISOPROLOL 2,5 MG 28 COMPRIMIDOS [Concomitant]
     Active Substance: BISOPROLOL
     Indication: ANGINA UNSTABLE
     Dosage: 2.5 MILLIGRAM, DAILY
     Route: 048
     Dates: start: 20151223
  2. ADIRO 100 MG COMPRIMIDOS GASTRORRESISTENTES EFG, 30 COMPRIMIDOS (PO... [Suspect]
     Active Substance: ASPIRIN
     Indication: CARDIOVASCULAR DISORDER
     Dosage: 100 MILLIGRAM, DAILY
     Route: 048
     Dates: start: 20151001
  3. OMEPRAZOLE. [Suspect]
     Active Substance: OMEPRAZOLE
     Indication: ANGINA UNSTABLE
     Dosage: 20 MILLIGRAM, DAILY
     Route: 048
     Dates: start: 20170404
  4. ISOSORBIDA MONONITRATO 60 MG 30 CAPSULAS LIBERACIAN MODIFICADA [Concomitant]
     Indication: ANGINA UNSTABLE
     Dosage: 60 MILLIGRAM, DAILY
     Route: 048
     Dates: start: 20151223

REACTIONS (2)
  - Intercepted medication error [Recovering/Resolving]
  - Gastric haemorrhage [Recovering/Resolving]

NARRATIVE: CASE EVENT DATE: 20200421
